FAERS Safety Report 14898898 (Version 6)
Quarter: 2018Q4

REPORT INFORMATION
  Report Type: Spontaneous
  Country: US (occurrence: US)
  Receive Date: 20180515
  Receipt Date: 20181214
  Transmission Date: 20190204
  Serious: Yes (Death, Hospitalization, Other)
  Sender: FDA-Public Use
  Company Number: US-BRISTOL-MYERS SQUIBB COMPANY-BMS-2018-042021

PATIENT
  Age: 65 Year
  Sex: Female
  Weight: 104.31 kg

DRUGS (1)
  1. ORENCIA [Suspect]
     Active Substance: ABATACEPT
     Indication: RHEUMATOID ARTHRITIS
     Dosage: 750 MG, Q4WK
     Route: 042
     Dates: start: 201803

REACTIONS (6)
  - Urinary tract infection [Unknown]
  - Inappropriate schedule of product administration [Unknown]
  - Death [Fatal]
  - Bronchitis [Not Recovered/Not Resolved]
  - Brain injury [Unknown]
  - Cerebrovascular accident [Unknown]

NARRATIVE: CASE EVENT DATE: 201804
